FAERS Safety Report 18499541 (Version 1)
Quarter: 2020Q4

REPORT INFORMATION
  Report Type: Spontaneous
  Country: US (occurrence: US)
  Receive Date: 20201113
  Receipt Date: 20201113
  Transmission Date: 20210114
  Serious: No
  Sender: FDA-Public Use
  Company Number: US-ACCORD-181666

PATIENT
  Sex: Female

DRUGS (1)
  1. MONTELUKAST ACCORD [Suspect]
     Active Substance: MONTELUKAST\MONTELUKAST SODIUM
     Indication: PRODUCT USED FOR UNKNOWN INDICATION
     Dosage: STRENGTH: 10MG

REACTIONS (3)
  - Depression [Unknown]
  - Skin injury [Unknown]
  - Hair injury [Unknown]
